FAERS Safety Report 4547880-7 (Version None)
Quarter: 2005Q1

REPORT INFORMATION
  Report Type: 
  Country: None (occurrence: None)
  Receive Date: 20050110
  Receipt Date: 20041229
  Transmission Date: 20050727
  Serious: Yes (Hospitalization)
  Sender: FDA-Public Use
  Company Number: BE-JNJFOC-20041207624

PATIENT
  Sex: Female
  Weight: 63.2 kg

DRUGS (13)
  1. INFLIXIMAB [Suspect]
     Route: 042
  2. INFLIXIMAB [Suspect]
     Route: 042
  3. INFLIXIMAB [Suspect]
     Route: 042
  4. INFLIXIMAB [Suspect]
     Route: 042
  5. INFLIXIMAB [Suspect]
     Route: 042
  6. INFLIXIMAB [Suspect]
     Route: 042
  7. INFLIXIMAB [Suspect]
     Route: 042
  8. INFLIXIMAB [Suspect]
     Indication: CROHN'S DISEASE
     Route: 042
  9. AZATHIOPRINE [Concomitant]
     Indication: CROHN'S DISEASE
  10. HYDROCORTISONE [Concomitant]
  11. LOPERAMIDE HCL [Concomitant]
     Indication: DIARRHOEA
     Dosage: PRN
  12. PERENTEROL [Concomitant]
     Indication: DIARRHOEA
  13. SUPPLEMENTS [Concomitant]

REACTIONS (2)
  - NEPHROLITHIASIS [None]
  - RENAL COLIC [None]
